FAERS Safety Report 15902246 (Version 6)
Quarter: 2019Q1

REPORT INFORMATION
  Report Type: Report from Study
  Country: AU (occurrence: AU)
  Receive Date: 20190201
  Receipt Date: 20190315
  Transmission Date: 20190417
  Serious: Yes (Other)
  Sender: FDA-Public Use
  Company Number: AU-SHIRE-AU201903424

PATIENT

DRUGS (4)
  1. REVESTIVE [Suspect]
     Active Substance: TEDUGLUTIDE
     Dosage: 0.05 MILLIGRAM/KILOGRAM
     Dates: start: 20190206
  2. REVESTIVE [Suspect]
     Active Substance: TEDUGLUTIDE
     Dosage: 0.28 MILLIGRAM, 1X/DAY:QD
     Route: 058
     Dates: start: 20190306
  3. AMLODIPINE [Concomitant]
     Active Substance: AMLODIPINE BESYLATE
     Indication: PRODUCT USED FOR UNKNOWN INDICATION
  4. REVESTIVE [Suspect]
     Active Substance: TEDUGLUTIDE
     Indication: SHORT-BOWEL SYNDROME
     Dosage: 2.8 MILLIGRAM, 1X/DAY:QD
     Route: 058
     Dates: start: 20190123

REACTIONS (10)
  - Injection site erythema [Recovering/Resolving]
  - Flatulence [Unknown]
  - Injection site irritation [Recovering/Resolving]
  - Injection site bruising [Unknown]
  - Vascular device infection [Not Recovered/Not Resolved]
  - Abdominal distension [Unknown]
  - Gastrointestinal stoma output abnormal [Unknown]
  - Stomal varices [Unknown]
  - Condition aggravated [Unknown]
  - Device colour issue [Recovering/Resolving]

NARRATIVE: CASE EVENT DATE: 20190130
